FAERS Safety Report 6993845-5 (Version None)
Quarter: 2010Q3

REPORT INFORMATION
  Report Type: 
  Country: None (occurrence: None)
  Receive Date: 20100917
  Receipt Date: 20100628
  Transmission Date: 20110219
  Serious: Yes (Other)
  Sender: FDA-Public Use
  Company Number: US-ASTRAZENECA-2007UW05628

PATIENT
  Age: 367 Month
  Sex: Female
  Weight: 44.5 kg

DRUGS (23)
  1. SEROQUEL [Suspect]
     Indication: BIPOLAR DISORDER
     Dosage: 25/200 MG
     Route: 048
     Dates: start: 20000101, end: 20070101
  2. SEROQUEL [Suspect]
     Indication: DEPRESSION
     Dosage: 25/200 MG
     Route: 048
     Dates: start: 20000101, end: 20070101
  3. SEROQUEL [Suspect]
     Dosage: 25-200 MG
     Route: 048
     Dates: start: 20040210
  4. SEROQUEL [Suspect]
     Dosage: 25-200 MG
     Route: 048
     Dates: start: 20040210
  5. SEROQUEL [Suspect]
     Dosage: 25-100 MG
     Route: 048
     Dates: start: 20050801, end: 20070901
  6. SEROQUEL [Suspect]
     Dosage: 25-100 MG
     Route: 048
     Dates: start: 20050801, end: 20070901
  7. ZYPREXA [Concomitant]
     Indication: BIPOLAR DISORDER
     Dosage: 2.5-7.5 MG
     Dates: start: 20020101, end: 20080101
  8. ZYPREXA [Concomitant]
     Indication: DEPRESSION
     Dosage: 2.5-7.5 MG
     Dates: start: 20020101, end: 20080101
  9. ZEMURON [Concomitant]
     Dosage: 2-5 MG
  10. PROZAC [Concomitant]
     Dosage: 20-60 MG
     Route: 048
  11. ESKALITH/ LITHIUM ER [Concomitant]
     Route: 048
     Dates: start: 20040101
  12. HALDOL [Concomitant]
  13. NICOTINE [Concomitant]
     Dosage: 21 MG/HR (TRANSDERMAL SYSTEM)
  14. ATIVAN [Concomitant]
     Dosage: 0.5/2 MG
     Route: 048
     Dates: start: 20020101, end: 20080101
  15. NALTREXONE HYDROCHLORIDE [Concomitant]
  16. DESYREL [Concomitant]
     Indication: SLEEP DISORDER
     Dosage: 50-100 MG
  17. GEODON [Concomitant]
     Dosage: 60/80 MG
     Dates: start: 20050101
  18. METFORMIN [Concomitant]
  19. ABILIFY [Concomitant]
     Dosage: 10 MG
     Dates: start: 20060101
  20. THORAZINE [Concomitant]
     Dosage: 100 MG
  21. WELLBUTRIN XL [Concomitant]
     Dosage: 150/300 MG
     Dates: start: 20050101, end: 20060101
  22. EFFEXOR XR [Concomitant]
     Dosage: 75 MG
     Dates: start: 20020101, end: 20040101
  23. LORAZEPAM [Concomitant]
     Dosage: 75 MG
     Dates: start: 20020101, end: 20040101

REACTIONS (1)
  - PANCREATITIS ACUTE [None]
